FAERS Safety Report 11216531 (Version 1)
Quarter: 2015Q2

REPORT INFORMATION
  Report Type: Spontaneous
  Country: US (occurrence: None)
  Receive Date: 20150623
  Receipt Date: 20150623
  Transmission Date: 20150821
  Serious: Yes (Other)
  Sender: FDA-Public Use
  Company Number: None

PATIENT
  Age: 60 Year
  Sex: Female
  Weight: 90.72 kg

DRUGS (10)
  1. BENICAR [Concomitant]
     Active Substance: OLMESARTAN MEDOXOMIL
  2. CRESTOR [Concomitant]
     Active Substance: ROSUVASTATIN CALCIUM
  3. PRILOSEC [Concomitant]
     Active Substance: OMEPRAZOLE MAGNESIUM
  4. INVOKANA [Suspect]
     Active Substance: CANAGLIFLOZIN
     Indication: TYPE 2 DIABETES MELLITUS
     Route: 048
     Dates: start: 20150528, end: 20150622
  5. LEVOTHYROXINE [Concomitant]
     Active Substance: LEVOTHYROXINE
  6. TOPROL XL [Concomitant]
     Active Substance: METOPROLOL SUCCINATE
  7. TRICOR [Concomitant]
     Active Substance: FENOFIBRATE
  8. BABY ASPIRIN [Concomitant]
     Active Substance: ASPIRIN
  9. CELEXA [Concomitant]
     Active Substance: CITALOPRAM HYDROBROMIDE
  10. METFORMIN [Concomitant]
     Active Substance: METFORMIN HYDROCHLORIDE

REACTIONS (4)
  - Condition aggravated [None]
  - No therapeutic response [None]
  - Dizziness [None]
  - Lichen sclerosus [None]

NARRATIVE: CASE EVENT DATE: 20150612
